FAERS Safety Report 8837143 (Version 3)
Quarter: 2012Q4

REPORT INFORMATION
  Report Type: 
  Country: NL (occurrence: NL)
  Receive Date: 20121012
  Receipt Date: 20121218
  Transmission Date: 20130627
  Serious: Yes (Death, Hospitalization)
  Sender: FDA-Public Use
  Company Number: PHHO2012NL012162

PATIENT
  Age: 69 Year
  Sex: Female
  Weight: 49 kg

DRUGS (9)
  1. MYCOPHENOLIC ACID [Suspect]
     Indication: STEM CELL TRANSPLANT
     Dosage: 900 mg, BID
     Route: 048
     Dates: start: 20120613
  2. SANDIMMUN [Suspect]
     Indication: STEM CELL TRANSPLANT
     Dosage: 125 mg, BID
     Route: 048
     Dates: start: 20120610
  3. DASATINIB [Suspect]
     Indication: CHROMOSOME ANALYSIS ABNORMAL
     Dosage: 100 mg, UNK
     Route: 048
     Dates: start: 20120806, end: 20120820
  4. PREDNISONE [Concomitant]
     Indication: STEM CELL TRANSPLANT
     Dosage: UNK
     Dates: start: 20120822
  5. CO-TRIMOXAZOLE [Concomitant]
     Indication: INFECTION PROPHYLAXIS
     Dosage: 480 mg, UNK
     Route: 048
     Dates: start: 20120216, end: 20120820
  6. TAVANIC [Concomitant]
     Indication: INFECTION PROPHYLAXIS
     Dosage: 500 mg, UNK
     Route: 048
     Dates: start: 20120628, end: 20120820
  7. VALACICLOVIR [Concomitant]
     Indication: INFECTION PROPHYLAXIS
     Dosage: 500 mg, BID
     Route: 048
     Dates: start: 20120222, end: 20120820
  8. FEMARA [Concomitant]
     Indication: BREAST CANCER
     Dosage: 2.5 mg, UNK
     Route: 048
     Dates: start: 2010, end: 20120820
  9. LORAZEPAM [Concomitant]
     Indication: NAUSEA
     Dosage: UNK
     Route: 048
     Dates: start: 20120615, end: 20120820

REACTIONS (6)
  - Multi-organ failure [Fatal]
  - Sepsis [Fatal]
  - Cardio-respiratory arrest [Fatal]
  - Acute graft versus host disease [Not Recovered/Not Resolved]
  - Cytomegalovirus infection [Not Recovered/Not Resolved]
  - Vomiting [Not Recovered/Not Resolved]
